FAERS Safety Report 19759666 (Version 2)
Quarter: 2021Q3

REPORT INFORMATION
  Report Type: Spontaneous
  Country: US (occurrence: US)
  Receive Date: 20210830
  Receipt Date: 20210920
  Transmission Date: 20211014
  Serious: No
  Sender: FDA-Public Use
  Company Number: US-BEH-2021135339

PATIENT
  Sex: Female
  Weight: 82.99 kg

DRUGS (2)
  1. HIZENTRA [Suspect]
     Active Substance: HUMAN IMMUNOGLOBULIN G
     Indication: RILEY-DAY SYNDROME
  2. HIZENTRA [Suspect]
     Active Substance: HUMAN IMMUNOGLOBULIN G
     Indication: SJOGREN^S SYNDROME
     Dosage: 20 GRAM, QW
     Route: 058
     Dates: start: 20200117

REACTIONS (4)
  - Feeling abnormal [Unknown]
  - Liquid product physical issue [Unknown]
  - No adverse event [Unknown]
  - Off label use [Unknown]
